FAERS Safety Report 15492630 (Version 2)
Quarter: 2019Q1

REPORT INFORMATION
  Report Type: Spontaneous
  Country: US (occurrence: US)
  Receive Date: 20181012
  Receipt Date: 20190110
  Transmission Date: 20190417
  Serious: Yes (Death, Other)
  Sender: FDA-Public Use
  Company Number: US-BRISTOL-MYERS SQUIBB COMPANY-BMS-2018-095750

PATIENT
  Age: 54 Year
  Sex: Male

DRUGS (1)
  1. BARACLUDE [Suspect]
     Active Substance: ENTECAVIR
     Indication: HEPATITIS B VIRUS TEST
     Dosage: 0.5 MG, QD
     Route: 048
     Dates: start: 20150727

REACTIONS (1)
  - Death [Fatal]

NARRATIVE: CASE EVENT DATE: 20180814
